FAERS Safety Report 4394920-4 (Version None)
Quarter: 2004Q3

REPORT INFORMATION
  Report Type: 
  Country: None (occurrence: None)
  Receive Date: 20040712
  Receipt Date: 20030502
  Transmission Date: 20050211
  Serious: Yes (Hospitalization)
  Sender: FDA-Public Use
  Company Number: GB-GLAXOSMITHKLINE-B0298757A

PATIENT
  Age: 37 Year
  Sex: Female

DRUGS (3)
  1. ABACAVIR [Suspect]
     Indication: HIV INFECTION
     Dosage: 300MG TWICE PER DAY
     Route: 065
  2. COMBIVIR [Suspect]
     Indication: HIV INFECTION
     Dosage: 1TAB TWICE PER DAY
     Route: 048
  3. NEVIRAPINE [Suspect]
     Indication: HIV INFECTION
     Dosage: 200MG TWICE PER DAY

REACTIONS (14)
  - ABNORMAL BEHAVIOUR [None]
  - CATATONIA [None]
  - CRYING [None]
  - DELUSION [None]
  - EUPHORIC MOOD [None]
  - FAECAL INCONTINENCE [None]
  - HALLUCINATION, AUDITORY [None]
  - HALLUCINATION, VISUAL [None]
  - MUTISM [None]
  - PERSECUTORY DELUSION [None]
  - POSTURING [None]
  - PSYCHOTIC DISORDER [None]
  - RADIAL NERVE PALSY [None]
  - URINARY INCONTINENCE [None]
